FAERS Safety Report 19822909 (Version 2)
Quarter: 2021Q3

REPORT INFORMATION
  Report Type: Report from Study
  Country: CN (occurrence: CN)
  Receive Date: 20210913
  Receipt Date: 20210915
  Transmission Date: 20211014
  Serious: No
  Sender: FDA-Public Use
  Company Number: CN-ORGANON-1712CHN007128

PATIENT
  Age: 45 Year
  Sex: Female

DRUGS (1)
  1. IMPLANON [Suspect]
     Active Substance: ETONOGESTREL
     Indication: CONTRACEPTION
     Dosage: 1 IMPLANT, ONCE, STRENGTH 68 MG
     Route: 059
     Dates: start: 20170617, end: 20180918

REACTIONS (3)
  - Deafness neurosensory [Not Recovered/Not Resolved]
  - Headache [Recovered/Resolved]
  - Vaginal haemorrhage [Not Recovered/Not Resolved]

NARRATIVE: CASE EVENT DATE: 201706
